FAERS Safety Report 14303147 (Version 1)
Quarter: 2017Q4

REPORT INFORMATION
  Report Type: Spontaneous
  Country: DE (occurrence: DE)
  Receive Date: 20171219
  Receipt Date: 20171219
  Transmission Date: 20180321
  Serious: Yes (Death, Other)
  Sender: FDA-Public Use
  Company Number: DE-TEVA-2017-DE-833910

PATIENT
  Age: 10 Year
  Sex: Male
  Weight: 35 kg

DRUGS (2)
  1. METOCLOPRAMID RATIOPHARM [Suspect]
     Active Substance: METOCLOPRAMIDE
     Indication: PRODUCT USED FOR UNKNOWN INDICATION
     Dosage: DOSE: 20 DROPS; ADMINISTERED AT 13: 00 AND 18:00.
     Route: 065
     Dates: start: 19910223
  2. TUTOFUSIN (AMINO ACIDS\ELECTROLYTES NOS\VITAMINS) [Suspect]
     Active Substance: AMINO ACIDS\ELECTROLYTES NOS\VITAMINS
     Indication: PRODUCT USED FOR UNKNOWN INDICATION
     Dosage: INFUSION
     Route: 065
     Dates: start: 19910223, end: 19910224

REACTIONS (7)
  - Brain oedema [Fatal]
  - Brain compression [Fatal]
  - Sepsis [Fatal]
  - Fracture displacement [Fatal]
  - Meningitis bacterial [Fatal]
  - Intra-abdominal fluid collection [Fatal]
  - Brain death [Fatal]

NARRATIVE: CASE EVENT DATE: 199102
